FAERS Safety Report 15396746 (Version 1)
Quarter: 2018Q3

REPORT INFORMATION
  Report Type: Spontaneous
  Country: JP (occurrence: JP)
  Receive Date: 20180918
  Receipt Date: 20180918
  Transmission Date: 20181010
  Serious: Yes (Other)
  Sender: FDA-Public Use
  Company Number: PHHY2018JP092960

PATIENT
  Age: 53 Year
  Sex: Female

DRUGS (7)
  1. AZITHROMYCIN ANHYDROUS. [Suspect]
     Active Substance: AZITHROMYCIN ANHYDROUS
     Indication: PNEUMONIA PNEUMOCOCCAL
     Dosage: 500 MG, QD
     Route: 065
  2. MEROPENEM. [Suspect]
     Active Substance: MEROPENEM
     Indication: PNEUMONIA PNEUMOCOCCAL
     Dosage: 2 G, QD
     Route: 065
  3. MEROPENEM. [Suspect]
     Active Substance: MEROPENEM
     Indication: PERITONITIS
  4. HYDROCORTISONE. [Suspect]
     Active Substance: HYDROCORTISONE
     Dosage: 50 MG, QD
     Route: 065
  5. PIPERACILLIN AND TAZOBACTAM [Suspect]
     Active Substance: PIPERACILLIN SODIUM\TAZOBACTAM SODIUM
     Indication: PNEUMONIA PNEUMOCOCCAL
     Dosage: 13.5 G, QD
     Route: 065
  6. HYDROCORTISONE. [Suspect]
     Active Substance: HYDROCORTISONE
     Dosage: 100 MG, QD
     Route: 065
  7. HYDROCORTISONE. [Suspect]
     Active Substance: HYDROCORTISONE
     Indication: PNEUMONIA PNEUMOCOCCAL
     Dosage: 200 MG, QD
     Route: 065

REACTIONS (11)
  - Peritonitis [Unknown]
  - Inflammation [Recovering/Resolving]
  - Fungal infection [Recovering/Resolving]
  - Gastrointestinal fungal infection [Recovering/Resolving]
  - Aspergillus infection [Recovering/Resolving]
  - Large intestinal ulcer [Recovering/Resolving]
  - Gastrointestinal fistula [Unknown]
  - Mucormycosis [Recovering/Resolving]
  - Pyrexia [Recovered/Resolved]
  - Large intestine perforation [Unknown]
  - Gastrointestinal wall thinning [Unknown]
